FAERS Safety Report 8301831-8 (Version None)
Quarter: 2012Q2

REPORT INFORMATION
  Report Type: 
  Country: None (occurrence: None)
  Receive Date: 20120420
  Receipt Date: 20120413
  Transmission Date: 20120825
  Serious: Yes (Other)
  Sender: FDA-Public Use
  Company Number: AU-B.I. PHARMACEUTICALS,INC./RIDGEFIELD-2012-AU-00008AU

PATIENT
  Sex: Male
  Weight: 94 kg

DRUGS (6)
  1. LIPITOR [Concomitant]
  2. ATACAND HCT [Concomitant]
     Dosage: 16/12.5
  3. COLGOUT [Concomitant]
     Dosage: 500 MCG
  4. MINIPRESS [Concomitant]
  5. ATENOLOL [Concomitant]
  6. PRADAXA [Suspect]
     Indication: ATRIAL FIBRILLATION
     Dosage: 300 MG
     Dates: start: 20110708, end: 20110905

REACTIONS (1)
  - MYALGIA [None]
